FAERS Safety Report 12144492 (Version 1)
Quarter: 2016Q1

REPORT INFORMATION
  Report Type: Spontaneous
  Country: US (occurrence: None)
  Receive Date: 20160303
  Receipt Date: 20160303
  Transmission Date: 20160526
  Serious: Yes (Other)
  Sender: FDA-Public Use
  Company Number: None

PATIENT
  Age: 39 Year
  Sex: Female
  Weight: 66.68 kg

DRUGS (3)
  1. MIRENA [Suspect]
     Active Substance: LEVONORGESTREL
     Dates: start: 20160301, end: 20160301
  2. BUPROPRION [Concomitant]
     Active Substance: BUPROPION
  3. ONE A DAY VITAMINS [Concomitant]

REACTIONS (7)
  - Medical device pain [None]
  - Dizziness [None]
  - Mobility decreased [None]
  - Muscle spasms [None]
  - Motor dysfunction [None]
  - Complication of device insertion [None]
  - Musculoskeletal stiffness [None]

NARRATIVE: CASE EVENT DATE: 20160301
